FAERS Safety Report 5211600-3 (Version None)
Quarter: 2007Q1

REPORT INFORMATION
  Report Type: 
  Country: None (occurrence: None)
  Receive Date: 20070118
  Receipt Date: 20070109
  Transmission Date: 20070707
  Serious: Yes (Hospitalization)
  Sender: FDA-Public Use
  Company Number: FR-JNJFOC-20070102482

PATIENT
  Age: 55 Year
  Sex: Female
  Weight: 80 kg

DRUGS (10)
  1. REMICADE [Suspect]
     Dosage: 8TH INFUSION
     Route: 042
  2. REMICADE [Suspect]
     Indication: ANKYLOSING SPONDYLITIS
     Dosage: 7 INFUSIONS
     Route: 042
  3. METHOTREXATE [Suspect]
     Indication: DRUG USE FOR UNKNOWN INDICATION
     Route: 048
  4. SPECIAFOLDINE [Concomitant]
     Route: 065
  5. APRANAX [Concomitant]
     Route: 065
  6. INIPOMP [Concomitant]
     Route: 065
  7. TRAMADOL HCL [Concomitant]
     Route: 065
  8. AMITRIPTYLINE HCL [Concomitant]
     Route: 042
  9. VENTOLIN [Concomitant]
     Dosage: 1-2 SACHETS AS NEEDED
     Route: 065
  10. DUPHALAC [Concomitant]
     Dosage: 1-2 SACHETS IF NEEDED
     Route: 065

REACTIONS (3)
  - ANAPHYLACTIC REACTION [None]
  - VISUAL ACUITY REDUCED [None]
  - VITREOUS HAEMORRHAGE [None]
